FAERS Safety Report 19942912 (Version 1)
Quarter: 2021Q4

REPORT INFORMATION
  Report Type: Spontaneous
  Country: CA (occurrence: CA)
  Receive Date: 20211008
  Receipt Date: 20211008
  Transmission Date: 20220303
  Serious: Yes (Hospitalization, Disabling)
  Sender: FDA-Public Use
  Company Number: None

PATIENT
  Age: 58 Year
  Sex: Female
  Weight: 72 kg

DRUGS (2)
  1. CYMBALTA [Suspect]
     Active Substance: DULOXETINE HYDROCHLORIDE
     Indication: Arthritis
     Dosage: ?          QUANTITY:3 CAPSULE(S);OTHER FREQUENCY:30MG,60MG,90MG;
     Route: 048
     Dates: start: 20160426, end: 20200601
  2. VITAMIN B12 [Concomitant]
     Active Substance: CYANOCOBALAMIN

REACTIONS (42)
  - Vision blurred [None]
  - Nausea [None]
  - Eye pain [None]
  - Feeling abnormal [None]
  - Hypersomnia [None]
  - Blindness [None]
  - Arthralgia [None]
  - Gait disturbance [None]
  - Tinnitus [None]
  - Sensitive skin [None]
  - Dysphagia [None]
  - Sneezing [None]
  - Nasal congestion [None]
  - Cystitis [None]
  - Nephrolithiasis [None]
  - Nightmare [None]
  - Dyspepsia [None]
  - Rash [None]
  - Dry mouth [None]
  - Drooling [None]
  - Choking [None]
  - Swelling face [None]
  - Anger [None]
  - Disturbance in attention [None]
  - Depressed mood [None]
  - Ear pain [None]
  - Paranoia [None]
  - Amnesia [None]
  - Rash pruritic [None]
  - Agitation [None]
  - Hallucination, visual [None]
  - Formication [None]
  - Taste disorder [None]
  - Pain in extremity [None]
  - Pain in jaw [None]
  - Bruxism [None]
  - Muscle rigidity [None]
  - Chest pain [None]
  - Neck pain [None]
  - Intervertebral disc protrusion [None]
  - Muscle rupture [None]
  - Ocular icterus [None]

NARRATIVE: CASE EVENT DATE: 20160426
